FAERS Safety Report 7102519-1 (Version None)
Quarter: 2010Q4

REPORT INFORMATION
  Report Type: 
  Country: None (occurrence: None)
  Receive Date: 20101115
  Receipt Date: 20101104
  Transmission Date: 20110411
  Serious: Yes (Death, Other)
  Sender: FDA-Public Use
  Company Number: JP-ROCHE-740601

PATIENT

DRUGS (1)
  1. TAMIFLU [Suspect]
     Dosage: NOTE: DOSAGE IS UNCERTAIN
     Route: 064

REACTIONS (3)
  - FOETAL DISORDER [None]
  - HYDROPS FOETALIS [None]
  - NEONATAL ASPHYXIA [None]
